FAERS Safety Report 21162836 (Version 1)
Quarter: 2022Q3

REPORT INFORMATION
  Report Type: Spontaneous
  Country: US (occurrence: US)
  Receive Date: 20220802
  Receipt Date: 20220802
  Transmission Date: 20221026
  Serious: No
  Sender: FDA-Public Use
  Company Number: US-Blueprint Medicines Corporation-301

PATIENT
  Sex: Female

DRUGS (2)
  1. AYVAKIT [Suspect]
     Active Substance: AVAPRITINIB
     Indication: Systemic mastocytosis
     Route: 048
  2. TUMS [Concomitant]
     Active Substance: CALCIUM CARBONATE
     Indication: Product used for unknown indication
     Route: 065

REACTIONS (9)
  - Irritability [Unknown]
  - Hypobarism [Unknown]
  - Agitation [Unknown]
  - Emotional disorder [Unknown]
  - Joint swelling [Unknown]
  - Swelling face [Unknown]
  - Swelling of eyelid [Unknown]
  - Weight increased [Unknown]
  - Product dose omission issue [Unknown]
